FAERS Safety Report 18309356 (Version 3)
Quarter: 2020Q4

REPORT INFORMATION
  Report Type: Spontaneous
  Country: BR (occurrence: BR)
  Receive Date: 20200924
  Receipt Date: 20201126
  Transmission Date: 20210113
  Serious: Yes (Hospitalization, Other)
  Sender: FDA-Public Use
  Company Number: NVSC2020BR260193

PATIENT

DRUGS (1)
  1. COSENTYX [Suspect]
     Active Substance: SECUKINUMAB
     Indication: PRODUCT USED FOR UNKNOWN INDICATION
     Dosage: 1 DF, QD (EVERY DAY FOR 4 DAYS)
     Route: 065

REACTIONS (9)
  - Dermatitis bullous [Unknown]
  - Systemic candida [Unknown]
  - Stevens-Johnson syndrome [Unknown]
  - Herpes virus infection [Unknown]
  - Hepatic enzyme increased [Unknown]
  - Oral herpes [Unknown]
  - Headache [Unknown]
  - Overdose [Unknown]
  - Mucosal inflammation [Unknown]
